FAERS Safety Report 8962571 (Version 1)
Quarter: 2012Q4

REPORT INFORMATION
  Report Type: Spontaneous
  Country: US (occurrence: None)
  Receive Date: 20121205
  Receipt Date: 20121205
  Transmission Date: 20130627
  Serious: No
  Sender: FDA-Public Use
  Company Number: 2515444201200009

PATIENT
  Age: 49 Year
  Sex: Female

DRUGS (2)
  1. BANANA BOAT DEEP TANNING DRY SPF 4 [Suspect]
     Indication: SUNBURN
     Route: 061
     Dates: start: 20121029
  2. BANANA BOAT DEEP TANNING DRY SPF 4 [Suspect]
     Indication: PROPHYLAXIS
     Route: 061
     Dates: start: 20121029

REACTIONS (4)
  - Rash [None]
  - Urticaria [None]
  - Rash macular [None]
  - Product quality issue [None]
